FAERS Safety Report 6608541-3 (Version None)
Quarter: 2010Q1

REPORT INFORMATION
  Report Type: 
  Country: None (occurrence: None)
  Receive Date: 20100301
  Receipt Date: 20100218
  Transmission Date: 20100710
  Serious: Yes (Other)
  Sender: FDA-Public Use
  Company Number: CA-JNJCH-2010000525

PATIENT
  Age: 67 Year
  Sex: Male

DRUGS (1)
  1. BENGAY ULTRA STRENGTH [Suspect]
     Indication: MUSCULOSKELETAL PAIN
     Dosage: TEXT:^A TINY BIT^ ONCE
     Route: 061
     Dates: start: 20091230, end: 20091230

REACTIONS (8)
  - APPLICATION SITE BURN [None]
  - APPLICATION SITE ERYTHEMA [None]
  - APPLICATION SITE PRURITUS [None]
  - APPLICATION SITE VESICLES [None]
  - PAIN [None]
  - PRODUCT QUALITY ISSUE [None]
  - SKIN EXFOLIATION [None]
  - SLEEP DISORDER [None]
